FAERS Safety Report 8298418-2 (Version None)
Quarter: 2012Q2

REPORT INFORMATION
  Report Type: 
  Country: None (occurrence: None)
  Receive Date: 20120419
  Receipt Date: 20120411
  Transmission Date: 20120825
  Serious: Yes (Other)
  Sender: FDA-Public Use
  Company Number: US-BAYER-2012-035891

PATIENT
  Age: 42 Year
  Sex: Female
  Weight: 49 kg

DRUGS (5)
  1. ROBAXIN [Concomitant]
  2. SUCRALFATE [Concomitant]
  3. CAMPHO-PHENIQUE ANTISEPTIC LIQUID [Suspect]
     Indication: ORAL HERPES
     Dosage: 1 DF, PRN
     Route: 061
     Dates: start: 20120301
  4. PENICILLIN [Concomitant]
  5. VALIUM [Concomitant]

REACTIONS (3)
  - BURNS THIRD DEGREE [None]
  - LIP SWELLING [None]
  - BLISTER [None]
